FAERS Safety Report 7898316-X (Version None)
Quarter: 2011Q4

REPORT INFORMATION
  Report Type: 
  Country: None (occurrence: None)
  Receive Date: 20111107
  Receipt Date: 20111102
  Transmission Date: 20120403
  Serious: Yes (Death, Life-Threatening, Hospitalization)
  Sender: FDA-Public Use
  Company Number: US-PFIZER INC-2010147407

PATIENT
  Sex: Female
  Weight: 34.1 kg

DRUGS (2)
  1. CRIZOTINIB [Suspect]
     Indication: NON-SMALL CELL LUNG CANCER
     Dosage: 200 MG, 2X/DAY
     Route: 048
     Dates: start: 20100408, end: 20101110
  2. AMBIEN [Concomitant]
     Indication: INSOMNIA
     Dosage: 10 MG, QHS
     Route: 048
     Dates: start: 20100604, end: 20101109

REACTIONS (3)
  - CARDIAC ARREST [None]
  - ACUTE RESPIRATORY FAILURE [None]
  - DEATH [None]
